FAERS Safety Report 16189294 (Version 1)
Quarter: 2019Q2

REPORT INFORMATION
  Report Type: Spontaneous
  Country: US (occurrence: US)
  Receive Date: 20190412
  Receipt Date: 20190412
  Transmission Date: 20190711
  Serious: No
  Sender: FDA-Public Use
  Company Number: US-TEVA-2019-US-1037059

PATIENT
  Sex: Female

DRUGS (2)
  1. BUPROPION HYDROCHLORIDE EXTENDED-RELEASE TABLETS [Suspect]
     Active Substance: BUPROPION HYDROCHLORIDE
     Indication: ATTENTION DEFICIT/HYPERACTIVITY DISORDER
     Dosage: EXTENDED-RELEASE, DOSE INCREASED, STRENGTH:300
  2. BUPROPION HYDROCHLORIDE EXTENDED-RELEASE TABLETS [Suspect]
     Active Substance: BUPROPION HYDROCHLORIDE
     Indication: SEASONAL AFFECTIVE DISORDER

REACTIONS (3)
  - Malaise [Unknown]
  - Nausea [Unknown]
  - Abdominal pain upper [Unknown]
